FAERS Safety Report 13372248 (Version 1)
Quarter: 2017Q1

REPORT INFORMATION
  Report Type: Spontaneous
  Country: US (occurrence: US)
  Receive Date: 20170324
  Receipt Date: 20170324
  Transmission Date: 20170429
  Serious: Yes (Life-Threatening, Hospitalization, Disabling, Other)
  Sender: FDA-Public Use
  Company Number: None

PATIENT
  Age: 66 Year
  Sex: Female
  Weight: 62.1 kg

DRUGS (11)
  1. PRAVASTATIN. [Concomitant]
     Active Substance: PRAVASTATIN
  2. PROTONIX(PANTOPRAZOLE) [Concomitant]
  3. WELLBUTRIN [Concomitant]
     Active Substance: BUPROPION HYDROCHLORIDE
  4. ESCITALOPRAM [Concomitant]
     Active Substance: ESCITALOPRAM OXALATE
  5. OXYBUTININ [Suspect]
     Active Substance: OXYBUTYNIN
     Indication: HYPERTONIC BLADDER
     Dosage: ?          QUANTITY:1 TABLET(S);?
     Route: 048
  6. VITAMIN B [Concomitant]
     Active Substance: VITAMIN B
  7. ONE A DAY GUMMIES [Concomitant]
  8. BRUPROPION [Concomitant]
  9. CLONAZAPAM [Concomitant]
     Active Substance: CLONAZEPAM
  10. REXULTI [Concomitant]
     Active Substance: BREXPIPRAZOLE
  11. VITAMIN D [Concomitant]
     Active Substance: CHOLECALCIFEROL

REACTIONS (5)
  - Depression [None]
  - Urinary tract infection [None]
  - Sleep disorder [None]
  - Hallucination [None]
  - Hallucination, auditory [None]

NARRATIVE: CASE EVENT DATE: 20150810
